FAERS Safety Report 10889589 (Version 5)
Quarter: 2015Q3

REPORT INFORMATION
  Report Type: Spontaneous
  Country: US (occurrence: US)
  Receive Date: 20150305
  Receipt Date: 20150924
  Transmission Date: 20151125
  Serious: No
  Sender: FDA-Public Use
  Company Number: US-GLAXOSMITHKLINE-US2015GSK029677

PATIENT
  Sex: Male

DRUGS (1)
  1. VOTRIENT [Suspect]
     Active Substance: PAZOPANIB HYDROCHLORIDE
     Indication: RENAL CANCER
     Dosage: 800 MG, QD
     Route: 065
     Dates: start: 20150203

REACTIONS (10)
  - Rhinorrhoea [Unknown]
  - Abdominal pain lower [Unknown]
  - Abdominal discomfort [Unknown]
  - Nausea [Unknown]
  - Thyroid mass [Unknown]
  - Constipation [Unknown]
  - Weight decreased [Unknown]
  - Ageusia [Unknown]
  - Fatigue [Unknown]
  - Flatulence [Unknown]
